FAERS Safety Report 8054917-X (Version None)
Quarter: 2012Q1

REPORT INFORMATION
  Report Type: 
  Country: None (occurrence: None)
  Receive Date: 20120119
  Receipt Date: 20120109
  Transmission Date: 20120608
  Serious: Yes (Hospitalization, Other)
  Sender: FDA-Public Use
  Company Number: US-BAYER-2011-070014

PATIENT
  Age: 40 Year
  Sex: Female
  Weight: 57.143 kg

DRUGS (4)
  1. YAZ [Suspect]
     Indication: MENSTRUATION IRREGULAR
  2. YAZ [Suspect]
     Indication: CONTRACEPTION
     Dosage: UNK
     Route: 048
     Dates: start: 20071101, end: 20090401
  3. YASMIN [Suspect]
     Indication: CONTRACEPTION
     Dosage: UNK
     Route: 048
     Dates: start: 20031001, end: 20061001
  4. YASMIN [Suspect]
     Indication: MENSTRUATION IRREGULAR

REACTIONS (13)
  - EMOTIONAL DISTRESS [None]
  - ASTHMA [None]
  - WITHDRAWAL SYNDROME [None]
  - DEEP VEIN THROMBOSIS [None]
  - PULMONARY EMBOLISM [None]
  - GAIT DISTURBANCE [None]
  - INJURY [None]
  - ANXIETY [None]
  - ABASIA [None]
  - DRUG DEPENDENCE [None]
  - VENOUS INJURY [None]
  - PAIN [None]
  - DYSPNOEA [None]
